FAERS Safety Report 6888459-1 (Version None)
Quarter: 2010Q3

REPORT INFORMATION
  Report Type: 
  Country: None (occurrence: None)
  Receive Date: 20100730
  Receipt Date: 20100721
  Transmission Date: 20110219
  Serious: Yes (Other)
  Sender: FDA-Public Use
  Company Number: GB-B.I. PHARMACEUTICALS,INC./RIDGEFIELD-2007-BP-11924BP

PATIENT
  Age: 34 Year
  Sex: Female

DRUGS (3)
  1. VIRAMUNE [Suspect]
     Indication: HIV INFECTION
     Dosage: 400 MG
     Route: 048
  2. TRUVADA [Suspect]
     Indication: HIV INFECTION
     Dosage: 245 MG
     Route: 048
     Dates: start: 20030305
  3. LAMIVUDINE [Suspect]
     Indication: HIV INFECTION
     Dosage: 300 MG
     Route: 048

REACTIONS (4)
  - ABORTION SPONTANEOUS [None]
  - PLACENTAL DISORDER [None]
  - PLACENTAL TRANSFUSION SYNDROME [None]
  - STILLBIRTH [None]
